FAERS Safety Report 12136853 (Version 2)
Quarter: 2016Q1

REPORT INFORMATION
  Report Type: Other
  Country: IT (occurrence: IT)
  Receive Date: 20160302
  Receipt Date: 20160303
  Transmission Date: 20160526
  Serious: Yes (Other)
  Sender: FDA-Public Use
  Company Number: IT-MYLANLABS-2016M1008986

PATIENT

DRUGS (3)
  1. RIZATRIPTAN. [Suspect]
     Active Substance: RIZATRIPTAN
     Indication: HEADACHE
     Dosage: UNK
     Route: 048
     Dates: start: 20151231, end: 20151231
  2. RIZATRIPTAN. [Suspect]
     Active Substance: RIZATRIPTAN
     Indication: VOMITING
  3. RIZATRIPTAN. [Suspect]
     Active Substance: RIZATRIPTAN
     Indication: PHOTOPHOBIA

REACTIONS (3)
  - Agitation [Recovering/Resolving]
  - Nausea [Recovering/Resolving]
  - Chills [Recovering/Resolving]

NARRATIVE: CASE EVENT DATE: 20151231
